FAERS Safety Report 5304616-X (Version None)
Quarter: 2007Q2

REPORT INFORMATION
  Report Type: 
  Country: None (occurrence: None)
  Receive Date: 20070416
  Receipt Date: 20070403
  Transmission Date: 20071010
  Serious: Yes (Hospitalization)
  Sender: FDA-Public Use
  Company Number: MEDI-0004467

PATIENT
  Age: 4 Month
  Sex: Female
  Weight: 3.08 kg

DRUGS (13)
  1. SYNAGIS [Suspect]
     Indication: BRONCHOPULMONARY DYSPLASIA
     Dosage: 75 MG, 1 IN 30 D, INTRAMUSCULAR
     Route: 030
     Dates: start: 20051222, end: 20051222
  2. SYNAGIS [Suspect]
     Indication: PREMATURE BABY
     Dosage: 75 MG, 1 IN 30 D, INTRAMUSCULAR
     Route: 030
     Dates: start: 20051222, end: 20051222
  3. SYNAGIS [Suspect]
     Indication: BRONCHOPULMONARY DYSPLASIA
     Dosage: 75 MG, 1 IN 30 D, INTRAMUSCULAR
     Route: 030
     Dates: start: 20060130
  4. SYNAGIS [Suspect]
     Indication: PREMATURE BABY
     Dosage: 75 MG, 1 IN 30 D, INTRAMUSCULAR
     Route: 030
     Dates: start: 20060130
  5. SYNAGIS [Suspect]
     Indication: BRONCHOPULMONARY DYSPLASIA
     Dosage: 75 MG, 1 IN 30 D, INTRAMUSCULAR
     Route: 030
     Dates: start: 20060227
  6. SYNAGIS [Suspect]
     Indication: PREMATURE BABY
     Dosage: 75 MG, 1 IN 30 D, INTRAMUSCULAR
     Route: 030
     Dates: start: 20060227
  7. SYNAGIS [Suspect]
     Indication: BRONCHOPULMONARY DYSPLASIA
     Dosage: 75 MG, 1 IN 30 D, INTRAMUSCULAR
     Route: 030
     Dates: start: 20060327
  8. SYNAGIS [Suspect]
     Indication: PREMATURE BABY
     Dosage: 75 MG, 1 IN 30 D, INTRAMUSCULAR
     Route: 030
     Dates: start: 20060327
  9. SYNAGIS [Suspect]
  10. SYNAGIS [Suspect]
  11. SYNAGIS [Suspect]
  12. VITAMIN D [Concomitant]
  13. FLUOR [Concomitant]

REACTIONS (4)
  - ANOREXIA [None]
  - FEEDING DISORDER [None]
  - GASTROENTERITIS [None]
  - GASTROOESOPHAGEAL REFLUX DISEASE [None]
